FAERS Safety Report 7973564-9 (Version None)
Quarter: 2011Q4

REPORT INFORMATION
  Report Type: 
  Country: None (occurrence: None)
  Receive Date: 20111213
  Receipt Date: 20111202
  Transmission Date: 20120403
  Serious: Yes (Other)
  Sender: FDA-Public Use
  Company Number: US-SHIRE-ALL1-2011-04794

PATIENT
  Age: 2 Year
  Sex: Male
  Weight: 17.8 kg

DRUGS (2)
  1. MULTIVITAMIN                       /00097801/ [Concomitant]
     Indication: SUPPLEMENTATION THERAPY
     Dosage: UNK, UNKNOWN
     Route: 065
  2. ELAPRASE [Suspect]
     Indication: MUCOPOLYSACCHARIDOSIS II
     Dosage: 12 MG, UNKNOWN
     Route: 041
     Dates: start: 20110301

REACTIONS (3)
  - INFUSION SITE EXTRAVASATION [None]
  - IMPLANT SITE EFFUSION [None]
  - INFUSION RELATED REACTION [None]
